FAERS Safety Report 10097122 (Version 1)
Quarter: 2014Q2

REPORT INFORMATION
  Report Type: Spontaneous
  Country: DK (occurrence: CA)
  Receive Date: 20140422
  Receipt Date: 20140422
  Transmission Date: 20141212
  Serious: Yes (Other)
  Sender: FDA-Public Use
  Company Number: CA-FRI-1000066736

PATIENT
  Age: 23 Year
  Sex: Female

DRUGS (1)
  1. ESCITALOPRAM [Suspect]
     Indication: ANXIETY
     Dosage: 20 MG
     Route: 048
     Dates: start: 2012, end: 2014

REACTIONS (2)
  - Alopecia totalis [Not Recovered/Not Resolved]
  - Self esteem decreased [Not Recovered/Not Resolved]
